FAERS Safety Report 5893982-2 (Version None)
Quarter: 2008Q3

REPORT INFORMATION
  Report Type: 
  Country: None (occurrence: None)
  Receive Date: 20080923
  Receipt Date: 20080922
  Transmission Date: 20090109
  Serious: Yes (Death)
  Sender: FDA-Public Use
  Company Number: AU-B.I. PHARMACEUTICALS,INC./RIDGEFIELD-2008-BP-13621AU

PATIENT
  Sex: Male
  Weight: 145 kg

DRUGS (6)
  1. MICARDIS HCT [Suspect]
     Indication: HYPERTENSION
     Dosage: 80/12.5 MG
     Route: 048
     Dates: start: 20080501
  2. SIMVASTATIN [Concomitant]
     Indication: BLOOD CHOLESTEROL INCREASED
     Dosage: 20MG
     Route: 048
     Dates: start: 20060501
  3. TEGRETOL [Concomitant]
     Indication: CONVULSION
     Dosage: 800MG
     Route: 048
     Dates: start: 20051101
  4. DIAFORMIN [Concomitant]
     Indication: DIABETES MELLITUS
     Dosage: 2000MG
     Route: 048
     Dates: start: 19990101
  5. ACTOS [Concomitant]
     Indication: DIABETES MELLITUS
     Dosage: 45MG
     Route: 048
     Dates: start: 20070501
  6. NOVOLOG MIX 70/30 [Concomitant]
     Indication: DIABETES MELLITUS
     Dosage: 60U
     Route: 058
     Dates: start: 20010101

REACTIONS (1)
  - MYOCARDIAL INFARCTION [None]
